FAERS Safety Report 14248358 (Version 11)
Quarter: 2018Q3

REPORT INFORMATION
  Report Type: Spontaneous
  Country: FR (occurrence: FR)
  Receive Date: 20171204
  Receipt Date: 20180730
  Transmission Date: 20181010
  Serious: Yes (Hospitalization)
  Sender: FDA-Public Use
  Company Number: FR-TEVA-2017-FR-827994

PATIENT
  Age: 27 Year
  Sex: Male
  Weight: 72 kg

DRUGS (9)
  1. AUGMENTIN [Suspect]
     Active Substance: AMOXICILLIN\CLAVULANATE POTASSIUM
     Indication: PYREXIA
     Dosage: 3 GRAM DAILY;
     Route: 042
     Dates: start: 20170731, end: 20170810
  2. KEPPRA [Suspect]
     Active Substance: LEVETIRACETAM
     Indication: EPILEPSY
     Dosage: 1500 MILLIGRAM DAILY;
     Route: 048
  3. KEPPRA [Suspect]
     Active Substance: LEVETIRACETAM
     Dosage: 2 DOSAGE FORMS DAILY;
     Route: 048
  4. TEMODAL [Concomitant]
     Active Substance: TEMOZOLOMIDE
     Indication: GLIONEURONAL TUMOUR
     Dosage: 6 COURSES
     Route: 065
     Dates: end: 201301
  5. BELUSTINE [Suspect]
     Active Substance: LOMUSTINE
     Indication: GLIONEURONAL TUMOUR
     Dosage: 160 MILLIGRAM DAILY;
     Route: 065
     Dates: start: 20170301, end: 20170712
  6. TAVANIC [Suspect]
     Active Substance: LEVOFLOXACIN
     Indication: PYREXIA
     Route: 048
     Dates: start: 20170804, end: 20170810
  7. PARACETAMOL [Suspect]
     Active Substance: ACETAMINOPHEN
     Indication: PYREXIA
     Dosage: 4 GRAM DAILY;
     Route: 042
     Dates: start: 20170731, end: 20170807
  8. NATULAN [Suspect]
     Active Substance: PROCARBAZINE HYDROCHLORIDE
     Indication: GLIONEURONAL TUMOUR
     Dosage: 100 MG DAILY
     Route: 048
     Dates: start: 20170308, end: 20170801
  9. VINCRISTINE TEVA [Suspect]
     Active Substance: VINCRISTINE
     Indication: GLIONEURONAL TUMOUR
     Dosage: 2 MILLIGRAM DAILY; 2 MG DAILY
     Route: 042
     Dates: start: 20170308, end: 20170719

REACTIONS (2)
  - Neutropenia [Unknown]
  - Liver injury [Recovering/Resolving]

NARRATIVE: CASE EVENT DATE: 20170807
